FAERS Safety Report 6440821-7 (Version None)
Quarter: 2009Q4

REPORT INFORMATION
  Report Type: 
  Country: None (occurrence: None)
  Receive Date: 20091102
  Receipt Date: 20090928
  Transmission Date: 20100525
  Serious: Yes (Hospitalization, Other)
  Sender: FDA-Public Use
  Company Number: 200813718

PATIENT
  Sex: Female
  Weight: 74.1 kg

DRUGS (16)
  1. PRIVIGEN [Suspect]
     Indication: CHRONIC GRAFT VERSUS HOST DISEASE
     Dosage: 1ST INFUSION: 40G (400 ML) OVER 3 HRS AND 40 MIN; 2ND INFUSION: 37G (370 ML) OVER 2 HRS AND 40 MIN,
     Route: 042
     Dates: start: 20080607, end: 20080608
  2. PRIVIGEN [Suspect]
     Indication: POLYNEUROPATHY
     Dosage: 1ST INFUSION: 40G (400 ML) OVER 3 HRS AND 40 MIN; 2ND INFUSION: 37G (370 ML) OVER 2 HRS AND 40 MIN,
     Route: 042
     Dates: start: 20080607, end: 20080608
  3. PREDNISONE TAB [Concomitant]
  4. TACROLIMUS [Concomitant]
  5. PROTONIX [Concomitant]
  6. ATOVAQUONE [Concomitant]
  7. ACYCLOVIR [Concomitant]
  8. TOPROLOL (METOPROLOL SUCCINATE) [Concomitant]
  9. DILTIAZEM [Concomitant]
  10. AMIODARONE HCL [Concomitant]
  11. ASPIRIN [Concomitant]
  12. NYSTATIN [Concomitant]
  13. LEVOTHYROXINE SODIUM [Concomitant]
  14. ATIVAN [Concomitant]
  15. EVISTA [Concomitant]
  16. LOVASTATIN [Concomitant]

REACTIONS (16)
  - ANURIA [None]
  - ASTHENIA [None]
  - BLOOD BILIRUBIN INCREASED [None]
  - BLOOD CREATININE INCREASED [None]
  - BLOOD LACTATE DEHYDROGENASE INCREASED [None]
  - CHEST DISCOMFORT [None]
  - COOMBS DIRECT TEST POSITIVE [None]
  - DIZZINESS [None]
  - DYSPNOEA [None]
  - HAEMOGLOBIN DECREASED [None]
  - HAEMOGLOBINURIA [None]
  - HAEMOLYTIC ANAEMIA [None]
  - INTRAVASCULAR HAEMOLYSIS [None]
  - NAUSEA [None]
  - PYREXIA [None]
  - RENAL FAILURE [None]
